FAERS Safety Report 21887766 (Version 2)
Quarter: 2023Q1

REPORT INFORMATION
  Report Type: Report from Study
  Country: US (occurrence: US)
  Receive Date: 20230120
  Receipt Date: 20230325
  Transmission Date: 20230418
  Serious: Yes (Death, Other)
  Sender: FDA-Public Use
  Company Number: US-ABBVIE-4277014

PATIENT
  Sex: Male
  Weight: 86 kg

DRUGS (3)
  1. IMBRUVICA [Suspect]
     Active Substance: IBRUTINIB
     Indication: Chronic lymphocytic leukaemia
     Route: 048
     Dates: start: 201803, end: 20230116
  2. JARDIANCE [Concomitant]
     Active Substance: EMPAGLIFLOZIN
     Indication: Product used for unknown indication
     Dosage: FREQUENCY TEXT DAILY
     Route: 048
  3. TRULICITY [Concomitant]
     Active Substance: DULAGLUTIDE
     Indication: Product used for unknown indication
     Dosage: FREQUENCY TEXT WEEKLY
     Route: 058

REACTIONS (3)
  - Lymphoplasmacytoid lymphoma/immunocytoma [Fatal]
  - Weight decreased [Unknown]
  - Arrhythmia [Unknown]
